FAERS Safety Report 8974930 (Version 1)
Quarter: 2012Q4

REPORT INFORMATION
  Report Type: 
  Country: US (occurrence: US)
  Receive Date: 20121219
  Receipt Date: 20121219
  Transmission Date: 20130627
  Serious: Yes (Hospitalization)
  Sender: FDA-Public Use
  Company Number: US-JNJFOC-20121105623

PATIENT
  Age: 61 None
  Sex: Female
  Weight: 122.93 kg

DRUGS (24)
  1. XARELTO [Suspect]
     Indication: CEREBROVASCULAR ACCIDENT PROPHYLAXIS
     Route: 048
  2. XARELTO [Suspect]
     Indication: CEREBROVASCULAR ACCIDENT PROPHYLAXIS
     Route: 048
     Dates: end: 20121102
  3. XARELTO [Suspect]
     Indication: ATRIAL FIBRILLATION
     Route: 048
  4. XARELTO [Suspect]
     Indication: ATRIAL FIBRILLATION
     Route: 048
     Dates: end: 20121102
  5. ASPIRIN [Concomitant]
  6. VICODIN [Concomitant]
     Indication: PAIN
     Route: 048
  7. ALPRAZOLAM [Concomitant]
     Indication: ANXIETY
     Dosage: as necessary
     Route: 048
  8. AMITRIPTYLINE [Concomitant]
     Route: 048
  9. ASPIRIN [Concomitant]
     Route: 048
  10. SYMBICORT [Concomitant]
  11. CHLORZOXAZONE [Concomitant]
     Route: 048
  12. PREMARIN [Concomitant]
     Route: 048
  13. CYCLOBENZAPRINE [Concomitant]
     Indication: MUSCLE SPASMS
     Dosage: as needed
     Route: 048
  14. DOXYCYCLINE [Concomitant]
  15. ESTRADIOL [Concomitant]
  16. LIDODERM [Concomitant]
     Route: 061
  17. LISINOPRIL [Concomitant]
     Route: 048
  18. METHOCARBAMOL [Concomitant]
  19. NITROGLYCERIN [Concomitant]
     Route: 060
  20. PANTOPRAZOLE [Concomitant]
     Route: 048
  21. POTASSIUM CHLORIDE [Concomitant]
  22. RANITIDINE [Concomitant]
     Route: 048
  23. SERTRALINE [Concomitant]
     Route: 048
  24. TRIAMCINOLONE [Concomitant]
     Route: 061

REACTIONS (2)
  - Gastric ulcer haemorrhage [Recovering/Resolving]
  - Melaena [Unknown]
